FAERS Safety Report 10047658 (Version 1)
Quarter: 2014Q1

REPORT INFORMATION
  Report Type: Spontaneous
  Country: US (occurrence: US)
  Receive Date: 20140331
  Receipt Date: 20140331
  Transmission Date: 20141002
  Serious: Yes (Other)
  Sender: FDA-Public Use
  Company Number: US-PFIZER INC-2014090239

PATIENT
  Age: 76 Year
  Sex: Male
  Weight: 113.38 kg

DRUGS (2)
  1. LIPITOR [Suspect]
     Dosage: 20 MG, 1X/DAY
  2. TAMSULOSIN [Concomitant]
     Dosage: 0.04 MG, 1X/DAY

REACTIONS (1)
  - Type 2 diabetes mellitus [Unknown]
